FAERS Safety Report 7744347-X (Version None)
Quarter: 2011Q3

REPORT INFORMATION
  Report Type: 
  Country: None (occurrence: None)
  Receive Date: 20110912
  Receipt Date: 20110907
  Transmission Date: 20111222
  Serious: Yes (Other)
  Sender: FDA-Public Use
  Company Number: US-PFIZER INC-2010043599

PATIENT
  Sex: Male
  Weight: 86.168 kg

DRUGS (18)
  1. LIPITOR [Concomitant]
  2. PROSCAR [Concomitant]
  3. TRAZODONE [Concomitant]
  4. MULTIVITAMIN [Concomitant]
     Dosage: UNK
  5. CLARITHROMYCIN [Concomitant]
     Dosage: 500 MG, 2X/DAY
     Dates: start: 20100326, end: 20100101
  6. DURAGESIC-100 [Concomitant]
     Dosage: UNIT DOSE: 50; FREQUENCY: EVERY 2 DAYS,
     Route: 062
  7. CELEXA [Concomitant]
     Dosage: 20 MG, 1X/DAY
  8. PROTONIX [Concomitant]
  9. CHANTIX [Suspect]
     Indication: SMOKING CESSATION THERAPY
     Dosage: 0.5 MG, 2X/DAY
     Route: 048
     Dates: start: 20100401, end: 20100401
  10. CHANTIX [Suspect]
     Dosage: 1 MG, 1X/DAY
     Dates: start: 20100401, end: 20100406
  11. HYDROMORPHONE [Concomitant]
     Dosage: FREQUENCY: AS NEEDED,
  12. AMBIEN [Concomitant]
  13. NORVASC [Concomitant]
  14. ANDROGEL [Concomitant]
     Dosage: 1%
  15. NICORETTE [Suspect]
     Dosage: UNK
  16. FLOMAX [Concomitant]
  17. PROVIGIL [Concomitant]
  18. ACETYLSALICYLIC ACID [Concomitant]

REACTIONS (4)
  - PALPITATIONS [None]
  - AGITATION [None]
  - FORMICATION [None]
  - DISTURBANCE IN ATTENTION [None]
